FAERS Safety Report 14704555 (Version 3)
Quarter: 2018Q2

REPORT INFORMATION
  Report Type: Report from Study
  Country: US (occurrence: HU)
  Receive Date: 20180402
  Receipt Date: 20180420
  Transmission Date: 20180711
  Serious: Yes (Other)
  Sender: FDA-Public Use
  Company Number: US-SUNOVION-2018SUN001208

PATIENT

DRUGS (2)
  1. SALBUTAMOL [Concomitant]
     Active Substance: ALBUTEROL
  2. INDACATEROL AND GLYCOPYRROLATE [Suspect]
     Active Substance: GLYCOPYRROLATE\INDACATEROL MALEATE
     Indication: CHRONIC OBSTRUCTIVE PULMONARY DISEASE
     Dosage: 1 DF, QD
     Route: 055
     Dates: start: 20180205, end: 20180312

REACTIONS (4)
  - Eye pruritus [Recovered/Resolved]
  - Forced expiratory volume decreased [Unknown]
  - Eye haemorrhage [Recovered/Resolved]
  - Rash [Recovered/Resolved]

NARRATIVE: CASE EVENT DATE: 20180207
